FAERS Safety Report 8963903 (Version 1)
Quarter: 2012Q4

REPORT INFORMATION
  Report Type: 
  Country: US (occurrence: US)
  Receive Date: 20121214
  Receipt Date: 20121214
  Transmission Date: 20130627
  Serious: No
  Sender: FDA-Public Use
  Company Number: US-009507513-1212USA004418

PATIENT
  Sex: Male

DRUGS (11)
  1. DULERA [Suspect]
     Indication: PULMONARY FIBROSIS
     Dosage: 100/5MCG, 2 puffs twice a day
     Route: 055
     Dates: start: 2012, end: 2012
  2. DULERA [Suspect]
     Dosage: one puff a week
     Route: 055
     Dates: start: 2012, end: 2012
  3. DULERA [Suspect]
     Dosage: two puff a week
     Route: 055
     Dates: start: 2012, end: 2012
  4. DULERA [Suspect]
     Dosage: three puff a week
     Route: 055
     Dates: start: 2012, end: 2012
  5. ALTACE [Concomitant]
  6. PEPCID [Concomitant]
  7. PLAVIX [Concomitant]
  8. TOPROL XL TABLETS [Concomitant]
  9. HYDROXYUREA [Concomitant]
  10. NIASPAN [Concomitant]
  11. LOPID [Concomitant]

REACTIONS (3)
  - Vocal cord inflammation [Recovered/Resolved]
  - Drug dose omission [Unknown]
  - Product quality issue [Unknown]
